FAERS Safety Report 12047250 (Version 4)
Quarter: 2016Q1

REPORT INFORMATION
  Report Type: Spontaneous
  Country: US (occurrence: US)
  Receive Date: 20160208
  Receipt Date: 20160226
  Transmission Date: 20160526
  Serious: Yes (Death, Other)
  Sender: FDA-Public Use
  Company Number: US-TEVA-633633USA

PATIENT
  Age: 44 Year
  Sex: Female

DRUGS (4)
  1. DIPHENHYDRAMINE. [Suspect]
     Active Substance: DIPHENHYDRAMINE
     Indication: COMPLETED SUICIDE
     Route: 065
  2. FLUORIDE [Suspect]
     Active Substance: SODIUM FLUORIDE
     Indication: COMPLETED SUICIDE
     Route: 065
  3. TOPIRAMATE. [Suspect]
     Active Substance: TOPIRAMATE
     Indication: COMPLETED SUICIDE
     Route: 065
  4. QUETIAPINE FUMARATE. [Suspect]
     Active Substance: QUETIAPINE FUMARATE
     Indication: COMPLETED SUICIDE
     Route: 065

REACTIONS (2)
  - Toxicity to various agents [Fatal]
  - Completed suicide [Fatal]
